FAERS Safety Report 6230008-5 (Version None)
Quarter: 2009Q2

REPORT INFORMATION
  Report Type: 
  Country: None (occurrence: None)
  Receive Date: 20090615
  Receipt Date: 20090601
  Transmission Date: 20091009
  Serious: Yes (Hospitalization, Other)
  Sender: FDA-Public Use
  Company Number: BR-AVENTIS-200915711GDDC

PATIENT
  Age: 75 Year
  Sex: Female
  Weight: 69 kg

DRUGS (13)
  1. LANTUS [Suspect]
     Route: 058
  2. OPTIPEN (INSULIN PUMP) [Suspect]
  3. OMEPRAZOL [Concomitant]
     Indication: PROPHYLAXIS
     Route: 048
  4. COZAAR [Concomitant]
     Indication: RENAL DISORDER
     Route: 048
  5. FUROMSEMIDE W/POTASSIUM CHLORIDE [Concomitant]
     Route: 048
  6. CITALOPRAM HYDROBROMIDE [Concomitant]
     Route: 048
  7. SIMVASTATIN [Concomitant]
     Route: 048
  8. VASTAREL [Concomitant]
     Route: 048
  9. FOLIC ACID [Concomitant]
     Route: 048
  10. UNKNOWN DRUG [Concomitant]
     Route: 048
  11. DIGOXIN [Concomitant]
     Route: 048
  12. NOVALGINA [Concomitant]
     Route: 048
  13. TYLENOL (CAPLET) [Concomitant]
     Route: 048

REACTIONS (4)
  - BLOOD GLUCOSE INCREASED [None]
  - ERUCTATION [None]
  - HYPERTENSIVE CRISIS [None]
  - IRRITABILITY [None]
